FAERS Safety Report 5065279-4 (Version None)
Quarter: 2006Q3

REPORT INFORMATION
  Report Type: 
  Country: None (occurrence: None)
  Receive Date: 20060725
  Receipt Date: 20060714
  Transmission Date: 20061208
  Serious: Yes (Other)
  Sender: FDA-Public Use
  Company Number: 2006089280

PATIENT
  Sex: Female

DRUGS (1)
  1. FRAGMIN [Suspect]
     Indication: DEEP VEIN THROMBOSIS
     Dosage: 15000 I.U. (15000 I.U., 1 IN 1 D), SUBCUTANEOUS
     Route: 058

REACTIONS (4)
  - IMPAIRED HEALING [None]
  - INJECTION SITE HAEMORRHAGE [None]
  - SKIN EXFOLIATION [None]
  - ULCER [None]
